FAERS Safety Report 5357280-8 (Version None)
Quarter: 2007Q2

REPORT INFORMATION
  Report Type: 
  Country: None (occurrence: None)
  Receive Date: 20070612
  Receipt Date: 20070528
  Transmission Date: 20071010
  Serious: Yes (Other)
  Sender: FDA-Public Use
  Company Number: 2007001057

PATIENT

DRUGS (1)
  1. MACUGEN [Suspect]
     Indication: CHOROIDAL NEOVASCULARISATION
     Dosage: UNK, INTRA-VITREAL

REACTIONS (1)
  - CHOROIDAL HAEMORRHAGE [None]
